FAERS Safety Report 22208365 (Version 1)
Quarter: 2023Q2

REPORT INFORMATION
  Report Type: Spontaneous
  Country: IT (occurrence: IT)
  Receive Date: 20230413
  Receipt Date: 20230413
  Transmission Date: 20230722
  Serious: Yes (Death)
  Sender: FDA-Public Use
  Company Number: IT-ROCHE-3320745

PATIENT
  Age: 63 Year
  Sex: Male

DRUGS (13)
  1. OXALIPLATIN [Suspect]
     Active Substance: OXALIPLATIN
     Indication: Primary cardiac lymphoma
     Dosage: UNK
     Route: 065
  2. BENDAMUSTINE HYDROCHLORIDE [Suspect]
     Active Substance: BENDAMUSTINE HYDROCHLORIDE
     Indication: Diffuse large B-cell lymphoma recurrent
     Dosage: UNK
     Route: 065
  3. PREDNISONE [Suspect]
     Active Substance: PREDNISONE
     Indication: Primary cardiac lymphoma
     Dosage: UNK
     Route: 065
  4. DOXORUBICIN [Suspect]
     Active Substance: DOXORUBICIN
     Indication: Primary cardiac lymphoma
     Dosage: UNK
     Route: 065
  5. DEXAMETHASONE [Suspect]
     Active Substance: DEXAMETHASONE
     Indication: Primary cardiac lymphoma
     Dosage: UNK
     Route: 065
  6. VINCRISTINE [Suspect]
     Active Substance: VINCRISTINE
     Indication: Primary cardiac lymphoma
     Dosage: UNK
     Route: 065
  7. RITUXIMAB [Suspect]
     Active Substance: RITUXIMAB
     Indication: Primary cardiac lymphoma
     Dosage: UNK
     Route: 065
  8. CYCLOPHOSPHAMIDE [Suspect]
     Active Substance: CYCLOPHOSPHAMIDE
     Indication: Primary cardiac lymphoma
     Dosage: UNK
     Route: 065
  9. POLATUZUMAB VEDOTIN [Suspect]
     Active Substance: POLATUZUMAB VEDOTIN
     Indication: Diffuse large B-cell lymphoma recurrent
     Dosage: UNK
     Route: 065
  10. CYTARABINE [Suspect]
     Active Substance: CYTARABINE
     Indication: Primary cardiac lymphoma
     Dosage: UNK
     Route: 065
  11. CYTARABINE [Concomitant]
     Active Substance: CYTARABINE
     Dosage: UNK
     Route: 065
  12. METHYLPREDNISOLONE [Concomitant]
     Active Substance: METHYLPREDNISOLONE
     Dosage: UNK
     Route: 065
  13. METHOTREXATE [Concomitant]
     Active Substance: METHOTREXATE
     Dosage: UNK
     Route: 065

REACTIONS (1)
  - Disease progression [Fatal]
